FAERS Safety Report 4874349-2 (Version None)
Quarter: 2006Q1

REPORT INFORMATION
  Report Type: 
  Country: None (occurrence: None)
  Receive Date: 20060106
  Receipt Date: 20060106
  Transmission Date: 20060701
  Serious: Yes (Other)
  Sender: FDA-Public Use
  Company Number: 200610006EU

PATIENT
  Age: 20 Year
  Sex: Female

DRUGS (2)
  1. NICODERM [Suspect]
     Dosage: 14MG PER DAY
     Route: 062
     Dates: start: 20051214, end: 20051219
  2. VITAMINS [Concomitant]
     Dates: start: 20030101

REACTIONS (6)
  - ASTHENIA [None]
  - BLEPHAROSPASM [None]
  - CONVULSION [None]
  - DIZZINESS [None]
  - NAUSEA [None]
  - VOMITING [None]
